FAERS Safety Report 10767930 (Version 1)
Quarter: 2015Q1

REPORT INFORMATION
  Report Type: Spontaneous
  Country: DK (occurrence: DK)
  Receive Date: 20150205
  Receipt Date: 20150205
  Transmission Date: 20150721
  Serious: Yes (Hospitalization)
  Sender: FDA-Public Use
  Company Number: DK-TEVA-532922ISR

PATIENT
  Age: 87 Year
  Sex: Female

DRUGS (4)
  1. PINEX [Concomitant]
     Active Substance: ACETAMINOPHEN
  2. OXABENZ [Concomitant]
     Active Substance: OXAZEPAM
  3. CIRCADIN [Concomitant]
     Active Substance: MELATONIN
  4. MALFIN [Suspect]
     Active Substance: MORPHINE SULFATE
     Indication: LUMBAR SPINAL STENOSIS
     Dosage: DOSAGE: 2 TABLETS AT 8 AM, 1 TABLET AT 12 AM AND 5 PM, AT 10 AM; 50 MG; STRENGTH: 10 MG
     Route: 048
     Dates: start: 2011, end: 20141028

REACTIONS (2)
  - Constipation [Unknown]
  - Condition aggravated [Unknown]

NARRATIVE: CASE EVENT DATE: 201410
